FAERS Safety Report 6657210-2 (Version None)
Quarter: 2010Q1

REPORT INFORMATION
  Report Type: 
  Country: None (occurrence: None)
  Receive Date: 20100317
  Receipt Date: 20091214
  Transmission Date: 20100710
  Serious: No
  Sender: FDA-Public Use
  Company Number: DSA_33677_2009

PATIENT
  Sex: Female

DRUGS (7)
  1. XENAZINE [Suspect]
     Indication: HUNTINGTON'S CHOREA
     Dosage: 12.5 MG BID ORAL, 12.5 MG TID ORAL, 12.5 MG BID ORAL
     Route: 048
     Dates: end: 20090416
  2. XENAZINE [Suspect]
     Indication: HUNTINGTON'S CHOREA
     Dosage: 12.5 MG BID ORAL, 12.5 MG TID ORAL, 12.5 MG BID ORAL
     Route: 048
     Dates: start: 20090417, end: 20090515
  3. XENAZINE [Suspect]
     Indication: HUNTINGTON'S CHOREA
     Dosage: 12.5 MG BID ORAL, 12.5 MG TID ORAL, 12.5 MG BID ORAL
     Route: 048
     Dates: start: 20090516
  4. LUVOX [Concomitant]
  5. DITROPAN [Concomitant]
  6. TRILEPTAL [Concomitant]
  7. WELLBUTRIN [Concomitant]

REACTIONS (4)
  - AGGRESSION [None]
  - DEPRESSION [None]
  - PSYCHOMOTOR HYPERACTIVITY [None]
  - SEDATION [None]
